FAERS Safety Report 25229780 (Version 1)
Quarter: 2025Q2

REPORT INFORMATION
  Report Type: Report from Study
  Country: CA (occurrence: CA)
  Receive Date: 20250423
  Receipt Date: 20250423
  Transmission Date: 20250716
  Serious: Yes (Hospitalization, Other)
  Sender: ABBVIE
  Company Number: CA-ABBVIE-6232763

PATIENT
  Sex: Male

DRUGS (3)
  1. RINVOQ [Suspect]
     Active Substance: UPADACITINIB
     Indication: Crohn^s disease
     Route: 048
  2. RINVOQ [Suspect]
     Active Substance: UPADACITINIB
     Indication: Crohn^s disease
     Route: 048
  3. VEDOLIZUMAB [Concomitant]
     Active Substance: VEDOLIZUMAB
     Indication: Product used for unknown indication

REACTIONS (9)
  - Back pain [Unknown]
  - Spinal fracture [Unknown]
  - Gastrointestinal disorder [Unknown]
  - Haematochezia [Recovered/Resolved]
  - Abdominal discomfort [Unknown]
  - Haematochezia [Unknown]
  - Crohn^s disease [Unknown]
  - Colectomy [Unknown]
  - Ileostomy [Unknown]
